FAERS Safety Report 8256265-1 (Version None)
Quarter: 2012Q2

REPORT INFORMATION
  Report Type: 
  Country: None (occurrence: None)
  Receive Date: 20120403
  Receipt Date: 20120328
  Transmission Date: 20120825
  Serious: Yes (Life-Threatening, Hospitalization, Other)
  Sender: FDA-Public Use
  Company Number: GB-PFIZER INC-GB-WYE-H09405609

PATIENT
  Age: 35 Year
  Sex: Female

DRUGS (17)
  1. LIDOCAINE [Concomitant]
     Dosage: UNK
  2. AMIODARONE HCL [Suspect]
     Indication: VENTRICULAR FIBRILLATION
     Dosage: 300 MG, SINGLE
  3. COCAINE [Suspect]
     Indication: NASAL SEPTAL OPERATION
  4. NITROUS OXIDE [Concomitant]
     Indication: ANAESTHESIA
     Dosage: 60%
     Route: 055
  5. PROPOFOL [Concomitant]
     Indication: ANAESTHESIA
     Dosage: 200 MG, SINGLE
  6. SODIUM BICARBONATE [Concomitant]
     Dosage: 50 MMOL, AS NEEDED
  7. COCAINE [Suspect]
     Indication: ANAESTHESIA
     Dosage: 250 MG, SINGLE
     Route: 045
  8. AMIODARONE HCL [Suspect]
     Indication: HYPOTENSION
  9. SEVOFLURANE [Suspect]
     Indication: ANAESTHESIA
     Dosage: 3%
     Route: 055
  10. ATROPINE [Concomitant]
     Indication: BRADYCARDIA
     Dosage: 3 MG, SINGLE
  11. DICLOFENAC [Concomitant]
     Dosage: UNK
     Route: 042
  12. OXYGEN [Concomitant]
     Indication: MAINTENANCE OF ANAESTHESIA
     Dosage: UNK
  13. EPINEPHRINE [Suspect]
     Indication: VENTRICULAR FIBRILLATION
     Dosage: 1MG INTRAVENOUS BOLUS X 4
     Route: 042
  14. EPINEPHRINE [Suspect]
     Indication: ANAESTHESIA
  15. ONDANSETRON [Suspect]
     Dosage: 4 MG, SINGLE
     Route: 042
  16. LIDOCAINE AND EPINEPHRINE [Suspect]
     Indication: ANAESTHESIA
     Dosage: [LIDOCAINE 100MG]/[EPINEPHRINE 60MCG]
     Route: 045
  17. FENTANYL [Concomitant]
     Dosage: UNK

REACTIONS (7)
  - VENTRICULAR FIBRILLATION [None]
  - HYPOTENSION [None]
  - CARDIAC ARREST [None]
  - APNOEA [None]
  - VENTRICULAR TACHYCARDIA [None]
  - LONG QT SYNDROME [None]
  - BRADYCARDIA [None]
